FAERS Safety Report 10743960 (Version 1)
Quarter: 2015Q1

REPORT INFORMATION
  Report Type: Spontaneous
  Country: US (occurrence: US)
  Receive Date: 20150128
  Receipt Date: 20150128
  Transmission Date: 20150721
  Serious: No
  Sender: FDA-Public Use
  Company Number: US-BIOGENIDEC-2015BI010119

PATIENT
  Sex: Female

DRUGS (1)
  1. AVONEX [Suspect]
     Active Substance: INTERFERON BETA-1A
     Indication: MULTIPLE SCLEROSIS
     Route: 030
     Dates: start: 20090508

REACTIONS (22)
  - Psoriasis [Not Recovered/Not Resolved]
  - General symptom [Unknown]
  - Pyrexia [Unknown]
  - Influenza like illness [Recovered/Resolved]
  - Injection site rash [Unknown]
  - Hypertension [Not Recovered/Not Resolved]
  - Hypoaesthesia [Not Recovered/Not Resolved]
  - Animal bite [Recovered/Resolved]
  - Hyperhidrosis [Not Recovered/Not Resolved]
  - Depressed mood [Unknown]
  - Infected bites [Recovered/Resolved]
  - Clostridium difficile infection [Unknown]
  - VIIth nerve paralysis [Not Recovered/Not Resolved]
  - Hyperphagia [Unknown]
  - Hemiparesis [Not Recovered/Not Resolved]
  - Stress [Unknown]
  - Chills [Recovered/Resolved]
  - Injection site pain [Unknown]
  - Multiple sclerosis [Unknown]
  - Feeling abnormal [Unknown]
  - Weight increased [Unknown]
  - Alopecia [Unknown]

NARRATIVE: CASE EVENT DATE: 2014
